FAERS Safety Report 9694212 (Version 2)
Quarter: 2014Q1

REPORT INFORMATION
  Report Type: Spontaneous
  Country: US (occurrence: US)
  Receive Date: 20131118
  Receipt Date: 20140205
  Transmission Date: 20141002
  Serious: Yes (Hospitalization)
  Sender: FDA-Public Use
  Company Number: US-B.I. PHARMACEUTICALS,INC./RIDGEFIELD-2013-BI-37403BP

PATIENT
  Age: 63 Year
  Sex: Female
  Weight: 118 kg

DRUGS (13)
  1. SPIRIVA [Suspect]
     Indication: ASTHMA
     Dosage: 18 MCG
     Route: 055
     Dates: start: 2004
  2. DIPHENHYDRAMINE [Concomitant]
     Indication: PRURITUS GENERALISED
     Route: 048
  3. PROAIR [Concomitant]
     Indication: ASTHMA
     Dosage: 4 ANZ
     Route: 055
  4. ADVAIR [Concomitant]
     Indication: ASTHMA
     Dosage: 2 ANZ
     Route: 055
  5. ALBUTEROL NEBULIZER TREATMENTS [Concomitant]
     Indication: ASTHMA
     Dosage: FORMULATION: INHALATION SOLUTION
     Route: 055
  6. THEOPHYLLINE [Concomitant]
     Indication: ASTHMA
     Route: 048
  7. GLIMEPIRIDE [Concomitant]
     Indication: DIABETES MELLITUS
     Dosage: 1 MG
     Route: 048
  8. SIMVASTATIN [Concomitant]
     Indication: BLOOD CHOLESTEROL INCREASED
     Route: 048
  9. FUROSEMIDE [Concomitant]
     Indication: FLUID RETENTION
     Route: 048
  10. FAMOTIDINE [Concomitant]
     Indication: GASTROOESOPHAGEAL REFLUX DISEASE
     Route: 048
  11. METOCLOPRAMIDE [Concomitant]
     Indication: GASTROOESOPHAGEAL REFLUX DISEASE
     Route: 048
  12. METHOCARBAMOL [Concomitant]
     Indication: MUSCLE SPASMS
     Route: 048
  13. HYDROCODONE [Concomitant]
     Indication: PAIN
     Route: 048

REACTIONS (9)
  - Pneumonia [Recovered/Resolved]
  - Humerus fracture [Recovered/Resolved]
  - Pain in extremity [Not Recovered/Not Resolved]
  - Fall [Recovered/Resolved]
  - Fatigue [Not Recovered/Not Resolved]
  - Insomnia [Not Recovered/Not Resolved]
  - Product quality issue [Recovered/Resolved]
  - Product quality issue [Recovered/Resolved]
  - Off label use [Not Recovered/Not Resolved]
